FAERS Safety Report 7680749-8 (Version None)
Quarter: 2011Q3

REPORT INFORMATION
  Report Type: 
  Country: None (occurrence: None)
  Receive Date: 20110812
  Receipt Date: 20110810
  Transmission Date: 20111222
  Serious: No
  Sender: FDA-Public Use
  Company Number: US-TEVA-295930USA

PATIENT
  Sex: Male

DRUGS (4)
  1. TIOTROPIUM BROMIDE [Concomitant]
     Indication: CHRONIC OBSTRUCTIVE PULMONARY DISEASE
  2. PROAIR HFA [Suspect]
     Indication: CHRONIC OBSTRUCTIVE PULMONARY DISEASE
     Route: 055
     Dates: start: 20110201
  3. DOXAZOSIN MESYLATE [Concomitant]
  4. MULTI-VITAMINS [Concomitant]

REACTIONS (1)
  - DRY MOUTH [None]
